FAERS Safety Report 18699632 (Version 3)
Quarter: 2021Q1

REPORT INFORMATION
  Report Type: Spontaneous
  Country: US (occurrence: US)
  Receive Date: 20210104
  Receipt Date: 20210323
  Transmission Date: 20210419
  Serious: Yes (Other)
  Sender: FDA-Public Use
  Company Number: US-PFIZER INC-2020519292

PATIENT
  Age: 63 Year
  Sex: Female

DRUGS (2)
  1. XELJANZ XR [Suspect]
     Active Substance: TOFACITINIB CITRATE
     Indication: RHEUMATOID ARTHRITIS
     Dosage: 11 MG, DAILY
     Route: 048
     Dates: start: 201911, end: 20210224
  2. ARAVA [Concomitant]
     Active Substance: LEFLUNOMIDE
     Dosage: UNK
     Dates: start: 202009

REACTIONS (12)
  - Headache [Recovering/Resolving]
  - Grip strength decreased [Unknown]
  - Rheumatoid arthritis [Unknown]
  - Blood triglycerides increased [Not Recovered/Not Resolved]
  - Madarosis [Unknown]
  - Blood pressure increased [Unknown]
  - Hyperaesthesia [Unknown]
  - Arthralgia [Unknown]
  - Blood cholesterol increased [Unknown]
  - Hepatic enzyme increased [Not Recovered/Not Resolved]
  - Liver function test increased [Unknown]
  - Musculoskeletal stiffness [Unknown]

NARRATIVE: CASE EVENT DATE: 2020
